FAERS Safety Report 8875628 (Version 4)
Quarter: 2013Q1

REPORT INFORMATION
  Report Type: Report from Study
  Country: FR (occurrence: FR)
  Receive Date: 20121023
  Receipt Date: 20130122
  Transmission Date: 20140127
  Serious: Yes (Hospitalization)
  Sender: FDA-Public Use
  Company Number: PHHO2012FR015005

PATIENT
  Sex: Female
  Weight: 38 kg

DRUGS (10)
  1. ZOLEDRONATE [Suspect]
     Indication: METASTASES TO BONE
     Dosage: 2 MG, UNK
     Dates: start: 20111231
  2. METHOTREXATE [Suspect]
     Indication: METASTASES TO BONE
     Dosage: 16 G, UNK
     Dates: start: 20111227, end: 20120502
  3. METHOTREXATE [Suspect]
     Dosage: 16 G, UNK
     Dates: start: 20120606
  4. IFOSFAMIDE [Suspect]
     Indication: METASTASES TO BONE
     Dosage: 4 G, UNK
     Dates: start: 20120124, end: 20120514
  5. IFOSFAMIDE [Suspect]
     Dosage: 4 G, UNK
     Dates: start: 20120606
  6. VP-16 [Suspect]
     Indication: METASTASES TO BONE
     Dosage: UNK
     Dates: start: 20120124, end: 20120514
  7. VP-16 [Suspect]
     Dosage: 100 MG, UNK
     Dates: start: 20120606
  8. CALCIUM [Concomitant]
  9. VITAMIN D [Concomitant]
  10. MESNA [Concomitant]
     Indication: PROPHYLAXIS

REACTIONS (3)
  - Wound dehiscence [Recovered/Resolved with Sequelae]
  - Postoperative wound infection [Recovered/Resolved with Sequelae]
  - Purulent discharge [Recovered/Resolved with Sequelae]
